FAERS Safety Report 4987721-7 (Version None)
Quarter: 2006Q2

REPORT INFORMATION
  Report Type: 
  Country: None (occurrence: None)
  Receive Date: 20060424
  Receipt Date: 20060405
  Transmission Date: 20061013
  Serious: Yes (Other)
  Sender: FDA-Public Use
  Company Number: FR200604000846

PATIENT
  Age: 50 Year
  Sex: Male

DRUGS (1)
  1. CIALIS(TADALFIL) TABLET [Suspect]
     Indication: ERECTILE DYSFUNCTION
     Dosage: ORAL
     Route: 048

REACTIONS (1)
  - HEPATITIS [None]
